FAERS Safety Report 10018151 (Version 2)
Quarter: 2014Q1

REPORT INFORMATION
  Report Type: Report from Study
  Country: JP (occurrence: JP)
  Receive Date: 20140318
  Receipt Date: 20140318
  Transmission Date: 20141002
  Serious: Yes (Life-Threatening, Hospitalization)
  Sender: FDA-Public Use
  Company Number: JP-BEH-2011029169

PATIENT
  Age: 13 Year
  Sex: 0
  Weight: 43 kg

DRUGS (7)
  1. IGPRO20 [Suspect]
     Indication: BRUTON^S AGAMMAGLOBULINAEMIA
     Route: 058
     Dates: start: 20110120, end: 20110707
  2. MUCODYNE [Concomitant]
     Indication: CHRONIC SINUSITIS
     Route: 048
     Dates: start: 20090319
  3. ASTOMIN [Concomitant]
     Indication: CHRONIC SINUSITIS
     Route: 048
     Dates: start: 20110601
  4. BRUFEN [Concomitant]
     Indication: ANALGESIC THERAPY
     Route: 048
     Dates: start: 20101130, end: 20110711
  5. BRUFEN [Concomitant]
     Indication: ANALGESIC THERAPY
     Route: 048
     Dates: start: 20101130, end: 20110711
  6. INTAL [Concomitant]
     Indication: ALLERGIC KERATITIS
     Route: 047
     Dates: start: 20110630
  7. VALTREX [Concomitant]
     Indication: VARICELLA

REACTIONS (1)
  - Encephalitis [Recovered/Resolved with Sequelae]
